FAERS Safety Report 25950134 (Version 1)
Quarter: 2025Q4

REPORT INFORMATION
  Report Type: Spontaneous
  Country: JP (occurrence: JP)
  Receive Date: 20251022
  Receipt Date: 20251022
  Transmission Date: 20260117
  Serious: Yes (Other)
  Sender: NOVARTIS
  Company Number: JP-002147023-NVSJ2025JP010214

PATIENT
  Age: 64 Year
  Sex: Male

DRUGS (1)
  1. PAZOPANIB [Suspect]
     Active Substance: PAZOPANIB
     Indication: Metastatic renal cell carcinoma
     Dosage: UNK
     Route: 065

REACTIONS (4)
  - Renal impairment [Unknown]
  - Anuria [Unknown]
  - Metastases to peritoneum [Recovering/Resolving]
  - Ascites [Recovering/Resolving]
